FAERS Safety Report 5578736-9 (Version None)
Quarter: 2007Q4

REPORT INFORMATION
  Report Type: 
  Country: None (occurrence: None)
  Receive Date: 20071227
  Receipt Date: 20071210
  Transmission Date: 20080405
  Serious: Yes (Other)
  Sender: FDA-Public Use
  Company Number: 8028563

PATIENT
  Age: 49 Year
  Sex: Female

DRUGS (1)
  1. XUSAL [Suspect]
     Dates: start: 20070613

REACTIONS (2)
  - DREAMY STATE [None]
  - ROAD TRAFFIC ACCIDENT [None]
